FAERS Safety Report 6961597-0 (Version None)
Quarter: 2010Q3

REPORT INFORMATION
  Report Type: 
  Country: None (occurrence: None)
  Receive Date: 20100901
  Receipt Date: 20100827
  Transmission Date: 20110219
  Serious: Yes (Hospitalization)
  Sender: FDA-Public Use
  Company Number: US-JNJCH-2010019581

PATIENT
  Sex: Female

DRUGS (4)
  1. BENADRYL [Suspect]
     Indication: HYPERSENSITIVITY
     Dosage: TEXT:UNKNOWN
     Route: 048
  2. VENTOLIN [Suspect]
     Indication: ASTHMA
     Dosage: TEXT:90 MCG
     Route: 055
  3. TOPAMAX [Concomitant]
     Indication: PRODUCT USED FOR UNKNOWN INDICATION
     Dosage: TEXT:UNKNOWN
     Route: 065
  4. DARVOCET-N 100 [Concomitant]
     Indication: PRODUCT USED FOR UNKNOWN INDICATION
     Dosage: TEXT:UNKNOWN
     Route: 065

REACTIONS (4)
  - DYSARTHRIA [None]
  - HEAD TITUBATION [None]
  - HYPOAESTHESIA [None]
  - VOMITING [None]
